FAERS Safety Report 6887886-6 (Version None)
Quarter: 2010Q3

REPORT INFORMATION
  Report Type: 
  Country: None (occurrence: None)
  Receive Date: 20100730
  Receipt Date: 20100720
  Transmission Date: 20110219
  Serious: Yes (Hospitalization, Other)
  Sender: FDA-Public Use
  Company Number: CN-PFIZER INC-2010092246

PATIENT
  Age: 71 Year
  Sex: Male

DRUGS (2)
  1. LIPITOR [Suspect]
     Indication: LIPIDS INCREASED
     Dosage: 10 MG, DAILY
     Route: 048
     Dates: start: 20080417, end: 20080423
  2. WARFARIN SODIUM [Concomitant]
     Dosage: 1.875 MG, DAILY
     Route: 048
     Dates: start: 20070501, end: 20080427

REACTIONS (3)
  - CEREBRAL HAEMORRHAGE [None]
  - HAEMORRHAGIC ANAEMIA [None]
  - THROMBOCYTOPENIC PURPURA [None]
